FAERS Safety Report 4875338-4 (Version None)
Quarter: 2006Q1

REPORT INFORMATION
  Report Type: 
  Country: None (occurrence: None)
  Receive Date: 20060109
  Receipt Date: 20051005
  Transmission Date: 20060701
  Serious: Yes (Death, Hospitalization)
  Sender: FDA-Public Use
  Company Number: US-MERCK-0510USA04582

PATIENT
  Age: 63 Year
  Sex: Male
  Weight: 72 kg

DRUGS (10)
  1. VIOXX [Suspect]
     Indication: ARTHRITIS
     Route: 048
     Dates: start: 20000501, end: 20020401
  2. VIOXX [Suspect]
     Route: 048
     Dates: start: 20020401
  3. NITROSTAT [Concomitant]
     Route: 065
  4. VENTOLIN [Concomitant]
     Route: 055
  5. ATROVENT [Concomitant]
     Route: 055
  6. LOTREL [Concomitant]
     Route: 065
  7. LIPITOR [Concomitant]
     Route: 065
  8. ASPIRIN [Concomitant]
     Route: 065
  9. ZOLOFT [Concomitant]
     Route: 065
  10. VITAMIN E [Concomitant]
     Route: 065

REACTIONS (28)
  - ABDOMINAL ADHESIONS [None]
  - ATRIAL TACHYCARDIA [None]
  - CARDIAC ARREST [None]
  - CARDIOVASCULAR DISORDER [None]
  - CAROTID ARTERY DISEASE [None]
  - CATARACT [None]
  - CHEST PAIN [None]
  - CHRONIC OBSTRUCTIVE PULMONARY DISEASE [None]
  - DIARRHOEA [None]
  - DIVERTICULUM [None]
  - EYE DISORDER [None]
  - FATIGUE [None]
  - GASTROOESOPHAGEAL REFLUX DISEASE [None]
  - HYPERLIPIDAEMIA [None]
  - HYPOTENSION [None]
  - HYPOXIA [None]
  - MAJOR DEPRESSION [None]
  - MYOCARDIAL INFARCTION [None]
  - OSTEOARTHRITIS [None]
  - PULMONARY EMBOLISM [None]
  - PULMONARY FIBROSIS [None]
  - ROTATOR CUFF SYNDROME [None]
  - SUDDEN CARDIAC DEATH [None]
  - TRIGGER FINGER [None]
  - UPPER RESPIRATORY TRACT INFECTION [None]
  - VENTRICULAR ARRHYTHMIA [None]
  - VENTRICULAR FIBRILLATION [None]
  - VISUAL DISTURBANCE [None]
